FAERS Safety Report 11889933 (Version 1)
Quarter: 2016Q1

REPORT INFORMATION
  Report Type: Spontaneous
  Country: US (occurrence: US)
  Receive Date: 20160105
  Receipt Date: 20160105
  Transmission Date: 20160526
  Serious: No
  Sender: FDA-Public Use
  Company Number: US-PERRIGO-15US005567

PATIENT
  Age: 40 Year
  Sex: Female
  Weight: 50.79 kg

DRUGS (1)
  1. GUAIFENESIN 600 MG 498 [Suspect]
     Active Substance: GUAIFENESIN
     Indication: RESPIRATORY TRACT CONGESTION
     Dosage: 1200 MG, BID
     Route: 048
     Dates: start: 20150531, end: 20150601

REACTIONS (3)
  - Nasal congestion [Unknown]
  - Nasal dryness [Unknown]
  - Dry throat [Unknown]

NARRATIVE: CASE EVENT DATE: 20150601
